FAERS Safety Report 16111939 (Version 4)
Quarter: 2019Q2

REPORT INFORMATION
  Report Type: Report from Study
  Country: KR (occurrence: KR)
  Receive Date: 20190325
  Receipt Date: 20190425
  Transmission Date: 20190711
  Serious: Yes (Hospitalization)
  Sender: FDA-Public Use
  Company Number: KR-EISAI MEDICAL RESEARCH-EC-2019-053789

PATIENT
  Age: 80 Year
  Sex: Female
  Weight: 47.55 kg

DRUGS (8)
  1. CHOLECALCIFEROL [Concomitant]
     Active Substance: CHOLECALCIFEROL
  2. LEVOTHYROXINE. [Concomitant]
     Active Substance: LEVOTHYROXINE
  3. IRON ACETYL-TRANSFERRIN [Concomitant]
  4. PREGABALIN. [Concomitant]
     Active Substance: PREGABALIN
  5. LENVATINIB [Suspect]
     Active Substance: LENVATINIB
     Dosage: 24MG OR 18MG
     Route: 048
     Dates: start: 20190220, end: 20190224
  6. PITAVASTATIN. [Concomitant]
     Active Substance: PITAVASTATIN CALCIUM
  7. LENVATINIB [Suspect]
     Active Substance: LENVATINIB
     Indication: THYROID CANCER
     Dosage: 24MG OR 18MG
     Route: 048
     Dates: start: 20171206, end: 20190130
  8. LENVATINIB [Suspect]
     Active Substance: LENVATINIB
     Dosage: 24MG OR 18MG
     Route: 048
     Dates: start: 2019, end: 20190213

REACTIONS (1)
  - Anaemia [Recovering/Resolving]

NARRATIVE: CASE EVENT DATE: 20190130
